FAERS Safety Report 11845300 (Version 11)
Quarter: 2016Q2

REPORT INFORMATION
  Report Type: Report from Study
  Country: US (occurrence: US)
  Receive Date: 20151217
  Receipt Date: 20160628
  Transmission Date: 20160815
  Serious: Yes (Hospitalization, Other)
  Sender: FDA-Public Use
  Company Number: US-GILEAD-2015-0188329

PATIENT
  Age: 47 Year
  Sex: Female
  Weight: 71.66 kg

DRUGS (60)
  1. ORENITRAM [Suspect]
     Active Substance: TREPROSTINIL
     Indication: PULMONARY HYPERTENSION
     Dosage: 2.5 MG, UNK
     Route: 048
     Dates: start: 20151229, end: 20160309
  2. ORENITRAM [Suspect]
     Active Substance: TREPROSTINIL
     Dosage: 7.5 MG, UNK
     Route: 048
  3. COLACE [Concomitant]
     Active Substance: DOCUSATE SODIUM
  4. FERGON [Concomitant]
     Active Substance: FERROUS GLUCONATE
  5. BIOTIN [Concomitant]
     Active Substance: BIOTIN
  6. MELOXICAM. [Concomitant]
     Active Substance: MELOXICAM
  7. ONDANSETRON [Concomitant]
     Active Substance: ONDANSETRON
  8. REMODULIN [Suspect]
     Active Substance: TREPROSTINIL
     Dosage: UNK
     Route: 042
     Dates: end: 201602
  9. CELEBREX [Concomitant]
     Active Substance: CELECOXIB
  10. VITAMIN C [Concomitant]
     Active Substance: ASCORBIC ACID
  11. PROMETHAZINE [Concomitant]
     Active Substance: PROMETHAZINE\PROMETHAZINE HYDROCHLORIDE
  12. CYANOCOBALAMIN. [Concomitant]
     Active Substance: CYANOCOBALAMIN
  13. ORENITRAM [Suspect]
     Active Substance: TREPROSTINIL
     Dosage: 7.5 MG, TID
     Route: 048
  14. XANAX [Concomitant]
     Active Substance: ALPRAZOLAM
  15. ALDACTONE [Concomitant]
     Active Substance: SPIRONOLACTONE
  16. OXYGEN. [Concomitant]
     Active Substance: OXYGEN
  17. ASCORBIC ACID. [Concomitant]
     Active Substance: ASCORBIC ACID
  18. AMBRISENTAN [Suspect]
     Active Substance: AMBRISENTAN
     Dosage: 10 MG QD
     Route: 065
     Dates: start: 20130404
  19. REVATIO [Suspect]
     Active Substance: SILDENAFIL CITRATE
     Indication: PRODUCT USED FOR UNKNOWN INDICATION
     Dosage: 60 MG, TID
     Route: 048
     Dates: start: 201501
  20. ORENITRAM [Suspect]
     Active Substance: TREPROSTINIL
     Dosage: 17.5 MG, TOTAL
     Route: 048
  21. ACETYLSALICYLIC ACID [Suspect]
     Active Substance: ASPIRIN
     Indication: PRODUCT USED FOR UNKNOWN INDICATION
     Route: 065
  22. DEMADEX [Concomitant]
     Active Substance: TORSEMIDE
  23. MORPHINE HYDROCHLORIDE [Concomitant]
     Active Substance: MORPHINE HYDROCHLORIDE
  24. TRAMADOL. [Concomitant]
     Active Substance: TRAMADOL
  25. AMBRISENTAN [Suspect]
     Active Substance: AMBRISENTAN
     Dosage: 10 MG QD
     Route: 065
  26. REMODULIN [Suspect]
     Active Substance: TREPROSTINIL
     Indication: PULMONARY HYPERTENSION
     Dosage: UNK
     Route: 048
     Dates: start: 20160806
  27. ORENITRAM [Suspect]
     Active Substance: TREPROSTINIL
     Dosage: 2.5 MG, TID
     Route: 048
  28. ORENITRAM [Suspect]
     Active Substance: TREPROSTINIL
     Dosage: 2.5 MG, UNK
  29. INVANZ [Concomitant]
     Active Substance: ERTAPENEM SODIUM
  30. TORSEMIDE. [Concomitant]
     Active Substance: TORSEMIDE
  31. ELAVIL [Concomitant]
     Active Substance: AMITRIPTYLINE HYDROCHLORIDE
  32. KLOR-CON [Concomitant]
     Active Substance: POTASSIUM CHLORIDE
  33. REQUIP [Concomitant]
     Active Substance: ROPINIROLE HYDROCHLORIDE
  34. REMODULIN [Suspect]
     Active Substance: TREPROSTINIL
     Indication: PULMONARY ARTERIAL HYPERTENSION
     Dosage: 0.092 UG/KG, UNK
     Route: 042
     Dates: start: 201406, end: 201602
  35. ORENITRAM [Suspect]
     Active Substance: TREPROSTINIL
     Dosage: 5 MG, BID
     Route: 048
  36. DIGOXIN. [Concomitant]
     Active Substance: DIGOXIN
  37. ALPRAZOLAM. [Concomitant]
     Active Substance: ALPRAZOLAM
  38. IRON [Concomitant]
     Active Substance: IRON
  39. AMBRISENTAN [Suspect]
     Active Substance: AMBRISENTAN
     Indication: PULMONARY HYPERTENSION
     Dosage: 10 MG, QD
     Route: 048
     Dates: start: 20110208
  40. AMBRISENTAN [Suspect]
     Active Substance: AMBRISENTAN
     Dosage: 10 MG QD
     Route: 048
  41. ORENITRAM [Suspect]
     Active Substance: TREPROSTINIL
     Dosage: 2.5 MG, UNK
     Route: 048
  42. UPTRAVI [Suspect]
     Active Substance: SELEXIPAG
     Indication: PRODUCT USED FOR UNKNOWN INDICATION
     Dosage: 200 MG, QD
  43. ZOCOR [Concomitant]
     Active Substance: SIMVASTATIN
  44. XARELTO [Concomitant]
     Active Substance: RIVAROXABAN
  45. SYNTHROID [Concomitant]
     Active Substance: LEVOTHYROXINE SODIUM
  46. SINEMET [Concomitant]
     Active Substance: CARBIDOPA\LEVODOPA
  47. DIPHENHYDRAMINE. [Concomitant]
     Active Substance: DIPHENHYDRAMINE
  48. RANITIDINE. [Concomitant]
     Active Substance: RANITIDINE
  49. METOLAZONE. [Concomitant]
     Active Substance: METOLAZONE
  50. FERROUS GLUCONATE [Concomitant]
     Active Substance: FERROUS GLUCONATE
  51. AMBRISENTAN [Suspect]
     Active Substance: AMBRISENTAN
     Indication: DRUG ABUSE
     Dosage: 10 MG QD
     Route: 065
  52. AMBRISENTAN [Suspect]
     Active Substance: AMBRISENTAN
     Dosage: UNK
  53. ORENITRAM [Suspect]
     Active Substance: TREPROSTINIL
     Dosage: 10 MG, TID
     Route: 048
  54. ORENITRAM [Suspect]
     Active Substance: TREPROSTINIL
     Dosage: 5 MG, TID
     Route: 048
     Dates: start: 20160307
  55. ACIPHEX [Concomitant]
     Active Substance: RABEPRAZOLE SODIUM
  56. ATIVAN [Concomitant]
     Active Substance: LORAZEPAM
  57. PRILOSEC [Concomitant]
     Active Substance: OMEPRAZOLE MAGNESIUM
  58. FLUTICASONE [Concomitant]
     Active Substance: FLUTICASONE\FLUTICASONE PROPIONATE
  59. CALCIUM [Concomitant]
     Active Substance: CALCIUM
  60. VITAMINE B COMPLEX [Concomitant]

REACTIONS (17)
  - Chills [Unknown]
  - Myocardial infarction [Recovered/Resolved]
  - Pyrexia [Unknown]
  - Fluid overload [Unknown]
  - Cellulitis [Unknown]
  - Malaise [Recovered/Resolved]
  - Asthenia [Unknown]
  - Device occlusion [Recovered/Resolved]
  - Pericardial effusion [Unknown]
  - Chest discomfort [Unknown]
  - Device related sepsis [Recovered/Resolved]
  - Gastric ulcer [Not Recovered/Not Resolved]
  - Infusion site pain [Unknown]
  - Cardiac failure congestive [Recovered/Resolved]
  - Acute respiratory failure [Unknown]
  - Upper respiratory tract infection [Unknown]
  - Clostridium difficile infection [Recovered/Resolved]

NARRATIVE: CASE EVENT DATE: 20151115
